FAERS Safety Report 24125095 (Version 1)
Quarter: 2024Q3

REPORT INFORMATION
  Report Type: Spontaneous
  Country: US (occurrence: US)
  Receive Date: 20240723
  Receipt Date: 20240723
  Transmission Date: 20241016
  Serious: Yes (Hospitalization)
  Sender: NOVARTIS
  Company Number: US-002147023-NVSC2024US147344

PATIENT
  Age: 77 Year
  Sex: Female
  Weight: 45 kg

DRUGS (4)
  1. CLOFAZIMINE [Suspect]
     Active Substance: CLOFAZIMINE
     Indication: Mycobacterial infection
     Dosage: UNK
     Route: 065
  2. OMADACYCLINE [Suspect]
     Active Substance: OMADACYCLINE
     Indication: Mycobacterial infection
     Dosage: 300 MG, QD
     Route: 048
  3. OMADACYCLINE [Suspect]
     Active Substance: OMADACYCLINE
     Dosage: 300 MG, BID
     Route: 065
     Dates: start: 20240424
  4. AMIKACIN SULFATE [Suspect]
     Active Substance: AMIKACIN SULFATE
     Indication: Mycobacterial infection
     Dosage: UNK
     Route: 065

REACTIONS (9)
  - COVID-19 [Not Recovered/Not Resolved]
  - COVID-19 pneumonia [Not Recovered/Not Resolved]
  - Cough [Unknown]
  - Dyspnoea [Unknown]
  - Hypotension [Unknown]
  - Body temperature increased [Unknown]
  - Weight decreased [Unknown]
  - Vomiting [Unknown]
  - Dizziness [Unknown]

NARRATIVE: CASE EVENT DATE: 20240618
